FAERS Safety Report 18214359 (Version 2)
Quarter: 2020Q4

REPORT INFORMATION
  Report Type: Spontaneous
  Country: JP (occurrence: JP)
  Receive Date: 20200831
  Receipt Date: 20201001
  Transmission Date: 20210113
  Serious: No
  Sender: FDA-Public Use
  Company Number: JP-TEVA-2020-JP-005411J

PATIENT
  Age: 79 Year
  Sex: Male

DRUGS (2)
  1. DUTASTERIDE CAP. 0.5MG AV ^TAKEDA TEVA^ [Suspect]
     Active Substance: DUTASTERIDE
     Indication: BENIGN PROSTATIC HYPERPLASIA
     Dosage: .5 MILLIGRAM DAILY;
     Route: 048
     Dates: start: 20200630
  2. TAMSULOSIN HYDROCHLORIDE. [Concomitant]
     Active Substance: TAMSULOSIN HYDROCHLORIDE
     Indication: BENIGN PROSTATIC HYPERPLASIA
     Dosage: .2 MILLIGRAM DAILY;
     Route: 048
     Dates: start: 20200630

REACTIONS (4)
  - Product substitution issue [Unknown]
  - Feeling hot [Unknown]
  - Oropharyngeal discomfort [Not Recovered/Not Resolved]
  - Throat irritation [Recovered/Resolved]

NARRATIVE: CASE EVENT DATE: 202007
